FAERS Safety Report 24753522 (Version 1)
Quarter: 2024Q4

REPORT INFORMATION
  Report Type: Spontaneous
  Country: GB (occurrence: GB)
  Receive Date: 20241219
  Receipt Date: 20241219
  Transmission Date: 20250114
  Serious: Yes (Other)
  Sender: ELI LILLY AND COMPANY
  Company Number: None

PATIENT

DRUGS (2)
  1. IXEKIZUMAB [Suspect]
     Active Substance: IXEKIZUMAB
     Indication: Juvenile idiopathic arthritis
     Dosage: 80 MG, OTHER (ONCE EVERY FOUR WEEKS)
     Route: 065
     Dates: start: 20240110
  2. LEFLUNOMIDE [Concomitant]
     Active Substance: LEFLUNOMIDE
     Indication: Juvenile idiopathic arthritis
     Dosage: UNK
     Dates: start: 20180606

REACTIONS (2)
  - Cholelithiasis [Recovered/Resolved]
  - Off label use [Unknown]

NARRATIVE: CASE EVENT DATE: 20241117
